FAERS Safety Report 18532982 (Version 1)
Quarter: 2020Q4

REPORT INFORMATION
  Report Type: Spontaneous
  Country: US (occurrence: US)
  Receive Date: 20201122
  Receipt Date: 20201122
  Transmission Date: 20210114
  Serious: No
  Sender: FDA-Public Use
  Company Number: None

PATIENT
  Age: 52 Year
  Sex: Female
  Weight: 87.6 kg

DRUGS (9)
  1. DEXAMETHASONE. [Concomitant]
     Active Substance: DEXAMETHASONE
     Dates: start: 20201116
  2. FAMOTIDINE. [Concomitant]
     Active Substance: FAMOTIDINE
     Dates: start: 20201121
  3. IPRATROPIUM/ALBUTEROL [Concomitant]
     Active Substance: ALBUTEROL\IPRATROPIUM
     Dates: start: 20201116
  4. ATORVASTATIN [Concomitant]
     Active Substance: ATORVASTATIN
     Dates: start: 20201116
  5. ENOXAPARIN [Concomitant]
     Active Substance: ENOXAPARIN
     Dates: start: 20201116
  6. ZINC. [Concomitant]
     Active Substance: ZINC
     Dates: start: 20201116
  7. REMDESIVIR. [Suspect]
     Active Substance: REMDESIVIR
     Indication: COVID-19 PNEUMONIA
     Route: 040
     Dates: start: 20201117, end: 20201121
  8. CARVEDILOL. [Concomitant]
     Active Substance: CARVEDILOL
     Dates: start: 20201117, end: 20201118
  9. VITAMIN C [Concomitant]
     Active Substance: ASCORBIC ACID
     Dates: start: 20201116

REACTIONS (3)
  - Aspartate aminotransferase increased [None]
  - Alanine aminotransferase increased [None]
  - Bradycardia [None]

NARRATIVE: CASE EVENT DATE: 20201118
